FAERS Safety Report 23289942 (Version 5)
Quarter: 2024Q4

REPORT INFORMATION
  Report Type: Report from Study
  Country: US (occurrence: US)
  Receive Date: 20231212
  Receipt Date: 20241220
  Transmission Date: 20250115
  Serious: Yes (Hospitalization, Other)
  Sender: ABBVIE
  Company Number: US-ABBVIE-5531800

PATIENT
  Age: 72 Year
  Sex: Male
  Weight: 106.59 kg

DRUGS (6)
  1. HUMIRA [Suspect]
     Active Substance: ADALIMUMAB
     Indication: Ankylosing spondylitis
     Dosage: FORM STRENGTH 40 MILLIGRAM?THERAPY STOP DATE 2023
     Route: 058
     Dates: start: 20231128
  2. HUMIRA [Suspect]
     Active Substance: ADALIMUMAB
     Dosage: THERAPY STOP DATE NOV 2023?FORM STRENGTH 40 MILLIGRAM
     Route: 058
     Dates: start: 20231115
  3. HUMIRA [Suspect]
     Active Substance: ADALIMUMAB
     Dosage: FORM STRENGTH 40 MILLIGRAM
     Route: 058
     Dates: start: 20191230
  4. HUMIRA [Suspect]
     Active Substance: ADALIMUMAB
     Dosage: FORM STRENGTH 40 MILLIGRAM
     Route: 058
     Dates: start: 20231212
  5. HUMIRA [Suspect]
     Active Substance: ADALIMUMAB
     Dosage: END DATE WAS 2023
     Route: 058
     Dates: start: 20230310
  6. HUMIRA [Suspect]
     Active Substance: ADALIMUMAB
     Route: 058
     Dates: start: 20200901

REACTIONS (7)
  - Atrial fibrillation [Recovered/Resolved]
  - Brain fog [Not Recovered/Not Resolved]
  - Heart rate increased [Unknown]
  - Restlessness [Not Recovered/Not Resolved]
  - Heart rate increased [Recovered/Resolved]
  - Atrial fibrillation [Recovered/Resolved]
  - Lethargy [Unknown]

NARRATIVE: CASE EVENT DATE: 20230101
